FAERS Safety Report 8971731 (Version 1)
Quarter: 2012Q4

REPORT INFORMATION
  Report Type: 
  Country: JP (occurrence: JP)
  Receive Date: 20121217
  Receipt Date: 20121217
  Transmission Date: 20130627
  Serious: Yes (Hospitalization)
  Sender: FDA-Public Use
  Company Number: JP-JHP PHARMACEUTICALS, LLC-JHP201200399

PATIENT
  Age: 70 Year
  Sex: Male
  Weight: 42.6 kg

DRUGS (25)
  1. DANTRIUM [Suspect]
     Indication: PAIN IN EXTREMITY
     Dosage: 25 mg, prn
     Route: 048
  2. COLONEL [Suspect]
     Indication: DIARRHOEA
     Dosage: 1000 mg
     Route: 048
  3. FERRUM [Concomitant]
     Indication: IRON DEFICIENCY ANAEMIA
     Dosage: 100 mg, qd
     Route: 048
     Dates: end: 20120614
  4. CINAL [Concomitant]
     Indication: IRON DEFICIENCY ANAEMIA
     Dosage: 1 g, qd
     Route: 048
     Dates: end: 20120614
  5. ZYLORIC [Concomitant]
     Indication: HYPERURICAEMIA
     Dosage: 100 mg, bid
     Route: 048
     Dates: end: 20120614
  6. DIOVAN [Concomitant]
     Indication: HYPERTENSION
     Dosage: 80 mg, qd
     Route: 048
     Dates: end: 20120613
  7. LASIX [Concomitant]
     Indication: RENAL FAILURE CHRONIC
     Dosage: 40 mg, prn
     Route: 048
  8. FLUITRAN [Concomitant]
     Indication: RENAL FAILURE CHRONIC
     Dosage: 2 mg, prn
     Route: 048
  9. NAUZELIN [Concomitant]
     Indication: OESOPHAGITIS
     Dosage: 10 mg, tid
     Route: 048
     Dates: start: 20120413, end: 20120614
  10. NAUZELIN [Concomitant]
     Indication: DECREASED APPETITE
  11. ADETPHOS [Concomitant]
     Indication: MUSCLE SPASMS
     Dosage: 120 mg, qd
     Route: 048
  12. MEQUITOLIDE [Concomitant]
     Indication: HYPOAESTHESIA
     Dosage: 100 mg, qd
     Route: 048
  13. BUSCOPAN [Concomitant]
     Indication: DIARRHOEA
     Dosage: 20 mg, qd
     Route: 048
  14. MEPIVACAINE HYDROCHLORIDE [Concomitant]
     Indication: OSTEOARTHRITIS
     Dosage: UNK
  15. EPEL [Concomitant]
     Indication: PAIN IN EXTREMITY
     Dosage: 100 mg, qd
     Route: 048
  16. HEPARIN [Suspect]
     Indication: ECZEMA ASTEATOTIC
     Dosage: UNK
     Route: 061
     Dates: start: 20120428
  17. ANTEBATE [Suspect]
     Indication: ECZEMA ASTEATOTIC
     Dosage: UNK
     Route: 061
     Dates: start: 20120428
  18. TALION [Suspect]
     Indication: ECZEMA ASTEATOTIC
     Dosage: 10 mg, bid
     Route: 048
     Dates: start: 20120428
  19. HERBAL EXTRACTS NOS [Suspect]
     Indication: MUSCLE SPASMS
     Dosage: 5 mg, bid
     Route: 048
     Dates: start: 20120404, end: 20120614
  20. WARFARIN [Concomitant]
     Indication: DEEP VEIN THROMBOSIS
     Dosage: 1 mg, qd
     Route: 048
     Dates: start: 20120528
  21. NESP [Concomitant]
     Indication: NEPHROGENIC ANAEMIA
     Dosage: 120 ug monthly
     Dates: start: 20120511
  22. PATELL [Concomitant]
     Indication: OSTEOARTHRITIS
     Dosage: UNK
     Route: 061
  23. MILTAX [Concomitant]
     Indication: OSTEOARTHRITIS
     Dosage: UNK
     Route: 061
  24. ARTZ DISPO [Concomitant]
     Indication: OSTEOARTHRITIS
     Dosage: 25 mg Q2W
     Route: 014
  25. BERAPROST SODIUM [Concomitant]
     Dosage: UNK
     Dates: start: 20110621, end: 20110822

REACTIONS (5)
  - Intentional drug misuse [Recovered/Resolved]
  - Calculus ureteric [Recovered/Resolved]
  - Vomiting [Recovered/Resolved]
  - Abdominal pain [Recovered/Resolved]
  - Hydronephrosis [None]
